FAERS Safety Report 19528746 (Version 2)
Quarter: 2021Q4

REPORT INFORMATION
  Report Type: Spontaneous
  Country: US (occurrence: US)
  Receive Date: 20210713
  Receipt Date: 20211123
  Transmission Date: 20220303
  Serious: Yes (Other)
  Sender: FDA-Public Use
  Company Number: US-MYLANLABS-2021M1042049

PATIENT
  Age: 62 Year
  Sex: Female
  Weight: 81.65 kg

DRUGS (6)
  1. EPINEPHRINE [Suspect]
     Active Substance: EPINEPHRINE
     Indication: Anaphylactic shock
     Dosage: UNK
     Route: 065
     Dates: start: 20210702
  2. PFIZER-BIONTECH COVID-19 VACCINE [Suspect]
     Active Substance: TOZINAMERAN
     Indication: COVID-19 immunisation
     Dosage: FIRST DOSE;RIGHT ARM, UPPER SHOULDER
     Dates: start: 20210702, end: 20210702
  3. LAMOTRIGINE [Concomitant]
     Active Substance: LAMOTRIGINE
     Indication: Seizure
     Dosage: 100 MILLIGRAM, QD
  4. MODAFINIL [Concomitant]
     Active Substance: MODAFINIL
     Dosage: 50 MILLIGRAM, QD (50MG, 1 AND A HALF TABLETS PER DAY)
  5. MELATONIN [Concomitant]
     Active Substance: MELATONIN
     Indication: Insomnia
     Dosage: 2-5MG PILLS AT NIGHT
  6. BENADRYL                           /00000402/ [Concomitant]
     Dosage: UNK
     Dates: start: 20210702

REACTIONS (4)
  - Heart rate increased [Unknown]
  - Hypoaesthesia [Not Recovered/Not Resolved]
  - Alopecia [Not Recovered/Not Resolved]
  - Hypertension [Unknown]

NARRATIVE: CASE EVENT DATE: 20210701
